FAERS Safety Report 18245805 (Version 1)
Quarter: 2020Q3

REPORT INFORMATION
  Report Type: Spontaneous
  Country: US (occurrence: US)
  Receive Date: 20200908
  Receipt Date: 20200908
  Transmission Date: 20201103
  Serious: No
  Sender: FDA-Public Use
  Company Number: None

PATIENT
  Age: 24 Year
  Sex: Female

DRUGS (1)
  1. HUMIRA [Suspect]
     Active Substance: ADALIMUMAB
     Indication: RHEUMATOID ARTHRITIS
     Dosage: OTHER DOSE:40MG/0.4ML;?
     Route: 058
     Dates: start: 20200902

REACTIONS (9)
  - Headache [None]
  - Abdominal pain [None]
  - Uterine pain [None]
  - Drug intolerance [None]
  - Injection site reaction [None]
  - Stomatitis [None]
  - Swelling face [None]
  - Therapy interrupted [None]
  - Drug hypersensitivity [None]

NARRATIVE: CASE EVENT DATE: 20200902
